FAERS Safety Report 18601260 (Version 1)
Quarter: 2020Q4

REPORT INFORMATION
  Report Type: Spontaneous
  Country: US (occurrence: US)
  Receive Date: 20201210
  Receipt Date: 20201210
  Transmission Date: 20210114
  Serious: No
  Sender: FDA-Public Use
  Company Number: US-AMERICAN REGENT INC-2019002802

PATIENT
  Sex: Female

DRUGS (4)
  1. AMIODARONE [Concomitant]
     Active Substance: AMIODARONE
     Indication: CARDIAC DISORDER
     Dosage: UNK
     Route: 065
  2. ELIQUIS [Concomitant]
     Active Substance: APIXABAN
     Indication: PROPHYLAXIS
     Dosage: UNK
     Route: 065
  3. SYNTHROID [Concomitant]
     Active Substance: LEVOTHYROXINE SODIUM
     Indication: THYROID DISORDER
     Dosage: UNK
     Route: 065
  4. VENOFER [Suspect]
     Active Substance: IRON SUCROSE
     Indication: HAEMOGLOBIN DECREASED
     Dosage: 200 MILLIGRAM
     Route: 042
     Dates: start: 20191209, end: 20191209

REACTIONS (4)
  - Abnormal faeces [Not Recovered/Not Resolved]
  - Illness [Not Recovered/Not Resolved]
  - Nausea [Not Recovered/Not Resolved]
  - Abdominal discomfort [Not Recovered/Not Resolved]

NARRATIVE: CASE EVENT DATE: 20191209
